FAERS Safety Report 6018874-X (Version None)
Quarter: 2008Q4

REPORT INFORMATION
  Report Type: 
  Country: None (occurrence: None)
  Receive Date: 20081224
  Receipt Date: 20081211
  Transmission Date: 20090506
  Serious: Yes (Life-Threatening, Other)
  Sender: FDA-Public Use
  Company Number: CA-PFIZER INC-2008100598

PATIENT
  Sex: Male
  Weight: 73 kg

DRUGS (5)
  1. ZELDOX [Suspect]
     Dosage: 80 MG, UNK
     Route: 048
     Dates: start: 20081120, end: 20081121
  2. PCP [Concomitant]
  3. CANNABIS [Concomitant]
  4. ALL OTHER THERAPEUTIC PRODUCTS [Concomitant]
  5. ZYPREXA [Concomitant]
     Dosage: UNK

REACTIONS (3)
  - DYSTONIA [None]
  - LOSS OF CONSCIOUSNESS [None]
  - RESPIRATORY ARREST [None]
